FAERS Safety Report 4856253-9 (Version None)
Quarter: 2005Q4

REPORT INFORMATION
  Report Type: 
  Country: None (occurrence: None)
  Receive Date: 20051215
  Receipt Date: 20051129
  Transmission Date: 20060501
  Serious: Yes (Hospitalization)
  Sender: FDA-Public Use
  Company Number: 8013607

PATIENT

DRUGS (1)
  1. LEVETIRACETAM [Suspect]

REACTIONS (2)
  - CONVULSION [None]
  - DRUG WITHDRAWAL CONVULSIONS [None]
